FAERS Safety Report 4489463-3 (Version None)
Quarter: 2004Q4

REPORT INFORMATION
  Report Type: 
  Country: None (occurrence: None)
  Receive Date: 20041026
  Receipt Date: 20041011
  Transmission Date: 20050328
  Serious: Yes (Death, Hospitalization, Other)
  Sender: FDA-Public Use
  Company Number: JP_041004748

PATIENT
  Age: 54 Year
  Sex: Male

DRUGS (6)
  1. ONCOVIN [Suspect]
     Indication: AESTHESIONEUROBLASTOMA
     Dosage: 1.05 MG/M2 OTHER
     Route: 050
  2. CYCLOPHOSPHAMIDE [Concomitant]
  3. DOXORUBICIN HCL [Concomitant]
  4. ETOPOSIDE [Concomitant]
  5. CISPLATIN [Concomitant]
  6. RADIOTHERAPY [Concomitant]

REACTIONS (10)
  - AESTHESIONEUROBLASTOMA [None]
  - BLOOD CHROMIUM DECREASED [None]
  - BLOOD SODIUM DECREASED [None]
  - DEPRESSED LEVEL OF CONSCIOUSNESS [None]
  - DIARRHOEA [None]
  - ELECTROLYTE IMBALANCE [None]
  - HAEMATOTOXICITY [None]
  - RECURRENT CANCER [None]
  - TETANY [None]
  - THERAPEUTIC RESPONSE DECREASED [None]
